FAERS Safety Report 8771826 (Version 2)
Quarter: 2012Q4

REPORT INFORMATION
  Report Type: 
  Country: NL (occurrence: NL)
  Receive Date: 20120905
  Receipt Date: 20120927
  Transmission Date: 20130627
  Serious: Yes (Other)
  Sender: FDA-Public Use
  Company Number: NL-PFIZER INC-2012213540

PATIENT
  Age: 27 Year
  Sex: Female
  Weight: 61 kg

DRUGS (2)
  1. SOMAVERT [Suspect]
     Indication: ACROMEGALY
     Dosage: 160 mg, UNK
     Route: 058
     Dates: start: 20120201
  2. OCTREOTIDE [Concomitant]
     Indication: ACROMEGALY
     Dosage: 30 mg, UNK
     Route: 030
     Dates: start: 20110101

REACTIONS (1)
  - Neoplasm [Unknown]
